FAERS Safety Report 21294344 (Version 1)
Quarter: 2022Q3

REPORT INFORMATION
  Report Type: Spontaneous
  Country: US (occurrence: US)
  Receive Date: 20220905
  Receipt Date: 20220905
  Transmission Date: 20221027
  Serious: Yes (Other)
  Sender: FDA-Public Use
  Company Number: US-UCBSA-2022052141

PATIENT
  Age: 10 Year
  Sex: Male

DRUGS (5)
  1. FINTEPLA [Suspect]
     Active Substance: FENFLURAMINE
     Indication: Product used for unknown indication
     Dosage: 3.6 MILLILITER, 2X/DAY (BID)
     Dates: end: 202208
  2. FINTEPLA [Suspect]
     Active Substance: FENFLURAMINE
     Dosage: 1.8ML IN MORNING AND 3.6ML IN THE EVENING
     Dates: start: 202208
  3. ONFI [Concomitant]
     Active Substance: CLOBAZAM
     Indication: Product used for unknown indication
     Dosage: UNK
  4. ONFI [Concomitant]
     Active Substance: CLOBAZAM
     Dosage: TAPERING DOSE
  5. ONFI [Concomitant]
     Active Substance: CLOBAZAM
     Dosage: 4.5ML DAILY

REACTIONS (2)
  - Seizure [Recovered/Resolved]
  - Product use issue [Unknown]

NARRATIVE: CASE EVENT DATE: 20220801
